FAERS Safety Report 4307020-6 (Version None)
Quarter: 2004Q1

REPORT INFORMATION
  Report Type: 
  Country: None (occurrence: None)
  Receive Date: 20040225
  Receipt Date: 20040211
  Transmission Date: 20041129
  Serious: Yes (Death, Hospitalization)
  Sender: FDA-Public Use
  Company Number: EWC040237947

PATIENT
  Sex: Male

DRUGS (4)
  1. CIALIS [Suspect]
     Indication: ERECTILE DYSFUNCTION
     Dosage: 20 MG/AS NEEDED
     Dates: start: 20031106
  2. IBUPROFEN [Concomitant]
  3. HJERTEMAGNYL [Concomitant]
  4. ACETAMINOPHEN [Concomitant]

REACTIONS (1)
  - CEREBRAL THROMBOSIS [None]
